FAERS Safety Report 4845748-X (Version None)
Quarter: 2005Q4

REPORT INFORMATION
  Report Type: 
  Country: None (occurrence: None)
  Receive Date: 20051201
  Receipt Date: 20050818
  Transmission Date: 20060501
  Serious: Yes (Hospitalization)
  Sender: FDA-Public Use
  Company Number: 2005BI015656

PATIENT
  Age: 48 Year
  Sex: Male

DRUGS (2)
  1. AVONEX [Suspect]
     Indication: MULTIPLE SCLEROSIS
     Dosage: 30 UG;QW;IM
     Route: 030
     Dates: start: 20050524, end: 20050101
  2. IMUREK [Concomitant]

REACTIONS (3)
  - CATHETER RELATED COMPLICATION [None]
  - MYOCARDIAL INFARCTION [None]
  - PERICARDITIS [None]
